FAERS Safety Report 16817408 (Version 8)
Quarter: 2020Q1

REPORT INFORMATION
  Report Type: Spontaneous
  Country: US (occurrence: US)
  Receive Date: 20190917
  Receipt Date: 20200114
  Transmission Date: 20200409
  Serious: Yes (Other)
  Sender: FDA-Public Use
  Company Number: US-PFIZER INC-2019395768

PATIENT
  Age: 52 Year
  Sex: Female
  Weight: 75.3 kg

DRUGS (6)
  1. IBRANCE [Suspect]
     Active Substance: PALBOCICLIB
     Dosage: 125 MG, 1X/DAY
     Dates: start: 201908
  2. IBRANCE [Suspect]
     Active Substance: PALBOCICLIB
     Dosage: 125 MG, 1X/DAY (ONCE A DAY)
     Dates: start: 20190807
  3. IBRANCE [Suspect]
     Active Substance: PALBOCICLIB
     Indication: BREAST CANCER METASTATIC
     Dosage: 125 MG, CYCLIC (125 MG, ONCE A DAY FOR 21 DAYS, BY MOUTH) (21 DAYS, 7 DAYS OFF)
     Route: 048
     Dates: start: 201907
  4. ANASTROZOLE. [Concomitant]
     Active Substance: ANASTROZOLE
     Indication: BREAST CANCER
     Dosage: 1 MG, UNK
     Dates: start: 201907
  5. LISINOPRIL. [Concomitant]
     Active Substance: LISINOPRIL
     Indication: HYPERTENSION
     Dosage: 5 MG, 1X/DAY
     Route: 048
     Dates: start: 201907
  6. ATENOLOL. [Concomitant]
     Active Substance: ATENOLOL
     Indication: HYPERTENSION
     Dosage: 60 MG, 1X/DAY
     Route: 048
     Dates: start: 201907

REACTIONS (15)
  - Feeling abnormal [Recovered/Resolved]
  - Headache [Not Recovered/Not Resolved]
  - Muscle spasms [Unknown]
  - Diabetes mellitus [Unknown]
  - Memory impairment [Unknown]
  - Disturbance in attention [Unknown]
  - Pain [Unknown]
  - Arthralgia [Unknown]
  - Diarrhoea [Recovering/Resolving]
  - Balance disorder [Unknown]
  - Fall [Unknown]
  - Pleural effusion [Unknown]
  - Stress [Unknown]
  - Depressed mood [Unknown]
  - Neoplasm progression [Unknown]

NARRATIVE: CASE EVENT DATE: 201907
